FAERS Safety Report 5965591-8 (Version None)
Quarter: 2008Q4

REPORT INFORMATION
  Report Type: 
  Country: None (occurrence: None)
  Receive Date: 20081125
  Receipt Date: 20081119
  Transmission Date: 20090506
  Serious: Yes (Death, Hospitalization)
  Sender: FDA-Public Use
  Company Number: US-AMGEN-US317561

PATIENT
  Sex: Female

DRUGS (2)
  1. NPLATE [Suspect]
     Indication: IDIOPATHIC THROMBOCYTOPENIC PURPURA
     Dates: start: 20081017, end: 20081107
  2. CORTICOSTEROID NOS [Concomitant]

REACTIONS (7)
  - ACUTE RESPIRATORY DISTRESS SYNDROME [None]
  - DEATH [None]
  - HAEMORRHAGE INTRACRANIAL [None]
  - MENOMETRORRHAGIA [None]
  - PLATELET COUNT DECREASED [None]
  - SPLENECTOMY [None]
  - UTERINE HAEMORRHAGE [None]
